FAERS Safety Report 10067161 (Version 2)
Quarter: 2014Q4

REPORT INFORMATION
  Report Type: Spontaneous
  Country: US (occurrence: None)
  Receive Date: 20140407
  Receipt Date: 20141117
  Transmission Date: 20150528
  Serious: Yes (Death, Hospitalization)
  Sender: FDA-Public Use
  Company Number: UTC-046606

PATIENT
  Age: 68 Year
  Sex: Male

DRUGS (2)
  1. WARFARIN(WARFARIN ) [Concomitant]
  2. REMODULIN [Suspect]
     Active Substance: TREPROSTINIL
     Indication: PULMONARY ARTERIAL HYPERTENSION
     Dosage: 0.018 UG/KG 1 IN 1 MIN
     Route: 058
     Dates: start: 20131203

REACTIONS (5)
  - Septic shock [None]
  - Pyrexia [None]
  - Dyspnoea [None]
  - Sepsis [None]
  - Respiratory failure [None]

NARRATIVE: CASE EVENT DATE: 20140323
